FAERS Safety Report 9893672 (Version 1)
Quarter: 2014Q1

REPORT INFORMATION
  Report Type: Spontaneous
  Country: US (occurrence: US)
  Receive Date: 20140213
  Receipt Date: 20140213
  Transmission Date: 20141002
  Serious: Yes (Other)
  Sender: FDA-Public Use
  Company Number: US-TEVA-462214USA

PATIENT
  Age: 32 Year
  Sex: Female
  Weight: 51.76 kg

DRUGS (2)
  1. PARAGARD 380A [Suspect]
     Indication: CONTRACEPTION
     Route: 015
     Dates: start: 20131115, end: 20131118
  2. PARAGARD 380A [Suspect]
     Route: 015
     Dates: start: 20131211

REACTIONS (2)
  - Uterine haemorrhage [Recovered/Resolved]
  - Exposure during pregnancy [Recovered/Resolved]
